FAERS Safety Report 24709069 (Version 1)
Quarter: 2024Q4

REPORT INFORMATION
  Report Type: Spontaneous
  Country: KW (occurrence: KW)
  Receive Date: 20241208
  Receipt Date: 20241208
  Transmission Date: 20250115
  Serious: Yes (Hospitalization)
  Sender: BOEHRINGER INGELHEIM
  Company Number: KW-BoehringerIngelheim-2024-BI-066890

PATIENT
  Age: 42 Year
  Sex: Male

DRUGS (1)
  1. JARDIANCE [Suspect]
     Active Substance: EMPAGLIFLOZIN
     Indication: Type 2 diabetes mellitus

REACTIONS (4)
  - Chest pain [Recovered/Resolved]
  - Myocarditis [Recovered/Resolved]
  - Diabetic ketoacidosis [Recovered/Resolved]
  - Cardiac failure [Not Recovered/Not Resolved]
